FAERS Safety Report 11004074 (Version 1)
Quarter: 2015Q2

REPORT INFORMATION
  Report Type: Report from Study
  Country: US (occurrence: US)
  Receive Date: 20150409
  Receipt Date: 20150409
  Transmission Date: 20150821
  Serious: No
  Sender: FDA-Public Use
  Company Number: US-AMGEN-USASL2015033193

PATIENT
  Age: 44 Year
  Sex: Male

DRUGS (1)
  1. ENBREL [Suspect]
     Active Substance: ETANERCEPT
     Indication: PSORIASIS
     Dosage: 40 MG, 2 TIMES/WK
     Route: 065
     Dates: start: 20141209, end: 20150108

REACTIONS (7)
  - Erythema [Recovered/Resolved]
  - Swelling [Not Recovered/Not Resolved]
  - Rash macular [Recovered/Resolved]
  - Muscle tightness [Recovered/Resolved]
  - Tenderness [Recovered/Resolved]
  - Burning sensation [Recovered/Resolved]
  - Hypoaesthesia [Recovered/Resolved]

NARRATIVE: CASE EVENT DATE: 201501
